FAERS Safety Report 8227932-0 (Version None)
Quarter: 2012Q1

REPORT INFORMATION
  Report Type: 
  Country: None (occurrence: None)
  Receive Date: 20120322
  Receipt Date: 20120319
  Transmission Date: 20120608
  Serious: Yes (Other)
  Sender: FDA-Public Use
  Company Number: GXKR2011DE03186

PATIENT

DRUGS (3)
  1. ENALAPRIL MALEATE [Suspect]
     Indication: HYPERTENSION
     Dosage: DAILY DOSE: 5 MG MILLGRAM(S) EVERY DAYS
     Route: 048
     Dates: start: 20030101, end: 20080701
  2. METAMIZOLE [Suspect]
     Indication: PAIN
     Dosage: 20 DRP, PRN
     Route: 048
     Dates: start: 20050101, end: 20070501
  3. DURAGESIC-100 [Suspect]
     Indication: PAIN
     Route: 062
     Dates: start: 20040901, end: 20051001

REACTIONS (1)
  - DEMENTIA [None]
